FAERS Safety Report 19683142 (Version 4)
Quarter: 2022Q2

REPORT INFORMATION
  Report Type: Spontaneous
  Country: US (occurrence: US)
  Receive Date: 20210811
  Receipt Date: 20220617
  Transmission Date: 20220721
  Serious: No
  Sender: FDA-Public Use
  Company Number: US-BRISTOL-MYERS SQUIBB COMPANY-BMS-2021-079092

PATIENT
  Age: 63 Year
  Sex: Female

DRUGS (3)
  1. ORENCIA [Suspect]
     Active Substance: ABATACEPT
     Indication: Rheumatoid arthritis
     Dosage: 125 MILLIGRAM, QWK
     Route: 058
     Dates: start: 20161118
  2. ORENCIA [Suspect]
     Active Substance: ABATACEPT
     Indication: Arthropathy
     Dosage: 125 MILLIGRAM, QWK
     Route: 058
     Dates: start: 201709
  3. ORENCIA [Suspect]
     Active Substance: ABATACEPT
     Indication: Osteoporosis

REACTIONS (3)
  - Arthralgia [Unknown]
  - Joint swelling [Unknown]
  - Arthralgia [Unknown]
